FAERS Safety Report 25363025 (Version 7)
Quarter: 2025Q4

REPORT INFORMATION
  Report Type: Report from Study
  Country: CA (occurrence: CA)
  Receive Date: 20250527
  Receipt Date: 20251006
  Transmission Date: 20260118
  Serious: Yes (Hospitalization)
  Sender: SAMSUNG BIOEPIS
  Company Number: CA-SAMSUNG BIOEPIS-SB-2025-18317

PATIENT
  Age: 80 Year
  Sex: Female

DRUGS (4)
  1. RENFLEXIS [Suspect]
     Active Substance: INFLIXIMAB-ABDA
     Indication: Crohn^s disease
     Route: 042
     Dates: start: 20250225
  2. RENFLEXIS [Suspect]
     Active Substance: INFLIXIMAB-ABDA
     Route: 042
     Dates: start: 20250225
  3. AZATHIOPRINE [Concomitant]
     Active Substance: AZATHIOPRINE
     Indication: Product used for unknown indication
     Dosage: DAILY;
     Route: 048
  4. PREVNAR 20 [Concomitant]
     Active Substance: PNEUMOCOCCAL 20-VALENT CONJUGATE VACCINE
     Indication: Immunisation

REACTIONS (6)
  - Pulmonary oedema [Unknown]
  - Malaise [Recovering/Resolving]
  - Cystitis [Unknown]
  - Urinary tract infection [Unknown]
  - Crohn^s disease [Unknown]
  - Product use issue [Unknown]

NARRATIVE: CASE EVENT DATE: 20250516
